FAERS Safety Report 21637469 (Version 1)
Quarter: 2022Q4

REPORT INFORMATION
  Report Type: Spontaneous
  Country: IT (occurrence: None)
  Receive Date: 20221124
  Receipt Date: 20221124
  Transmission Date: 20230113
  Serious: Yes (Other)
  Sender: FDA-Public Use
  Company Number: None

PATIENT
  Age: 49 Year
  Sex: Female

DRUGS (2)
  1. TECENTRIQ [Suspect]
     Active Substance: ATEZOLIZUMAB
     Indication: Breast cancer stage IV
     Dosage: DOSAGE OF 840 MG
     Route: 065
     Dates: start: 20210513, end: 20220909
  2. ABRAXANE [Concomitant]
     Active Substance: PACLITAXEL
     Indication: Breast cancer stage IV
     Dosage: DOSAGGIO DI 162 MG/METRO QUADRO
     Dates: start: 20210513

REACTIONS (1)
  - Pulmonary toxicity [Recovering/Resolving]

NARRATIVE: CASE EVENT DATE: 20220913
